FAERS Safety Report 6573024-6 (Version None)
Quarter: 2010Q1

REPORT INFORMATION
  Report Type: 
  Country: None (occurrence: None)
  Receive Date: 20100208
  Receipt Date: 20091211
  Transmission Date: 20100710
  Serious: No
  Sender: FDA-Public Use
  Company Number: US-BAYER-200943137NA

PATIENT
  Sex: Female

DRUGS (1)
  1. YAZ [Suspect]
     Indication: CYST
     Dosage: MISSED 4 PILLS
     Route: 048

REACTIONS (2)
  - HEADACHE [None]
  - VAGINAL HAEMORRHAGE [None]
